FAERS Safety Report 12773149 (Version 1)
Quarter: 2016Q3

REPORT INFORMATION
  Report Type: Spontaneous
  Country: US (occurrence: US)
  Receive Date: 20160922
  Receipt Date: 20160922
  Transmission Date: 20161109
  Serious: No
  Sender: FDA-Public Use
  Company Number: US-ENDO PHARMACEUTICALS INC.-2015-004808

PATIENT
  Age: 69 Year
  Sex: Female
  Weight: 69.01 kg

DRUGS (4)
  1. SPIRONOLACTONE TABLETS 100MG [Suspect]
     Active Substance: SPIRONOLACTONE
     Indication: ALOPECIA
     Route: 048
     Dates: start: 201506, end: 20151124
  2. CYTOMEL [Concomitant]
     Active Substance: LIOTHYRONINE SODIUM
     Indication: HYPOTHYROIDISM
  3. SPIRONOLACTONE TABLETS 100MG [Suspect]
     Active Substance: SPIRONOLACTONE
     Indication: OEDEMA
  4. WP THYROID [Concomitant]
     Indication: HYPOTHYROIDISM

REACTIONS (10)
  - Condition aggravated [Recovered/Resolved]
  - Pain of skin [Unknown]
  - Oedema [Recovering/Resolving]
  - Drug effect decreased [Unknown]
  - Blood aldosterone increased [Unknown]
  - Pruritus [Unknown]
  - Alopecia [Recovered/Resolved]
  - Hair growth abnormal [Unknown]
  - Acne [Recovering/Resolving]
  - Off label use [Recovered/Resolved]

NARRATIVE: CASE EVENT DATE: 2015
